FAERS Safety Report 6651028-2 (Version None)
Quarter: 2010Q1

REPORT INFORMATION
  Report Type: 
  Country: None (occurrence: None)
  Receive Date: 20100325
  Receipt Date: 20100310
  Transmission Date: 20100710
  Serious: Yes (Other)
  Sender: FDA-Public Use
  Company Number: US-MYLANLABS-2010S1004031

PATIENT
  Age: 6 Month
  Sex: Male

DRUGS (6)
  1. DUONEB [Suspect]
     Route: 055
  2. AMOXICILLIN AND CLAVULANATE POTASSIUM [Concomitant]
     Route: 065
  3. PREDNISONE [Concomitant]
     Route: 065
  4. SALBUTAMOL [Concomitant]
     Route: 065
  5. FLUTICASONE PROPIONATE [Concomitant]
     Route: 065
  6. LANSOPRAZOLE [Concomitant]
     Route: 065

REACTIONS (3)
  - PUPILS UNEQUAL [None]
  - STARING [None]
  - UNRESPONSIVE TO STIMULI [None]
